FAERS Safety Report 21841301 (Version 1)
Quarter: 2023Q1

REPORT INFORMATION
  Report Type: Spontaneous
  Country: DE (occurrence: DE)
  Receive Date: 20230110
  Receipt Date: 20230110
  Transmission Date: 20230418
  Serious: Yes (Other)
  Sender: FDA-Public Use
  Company Number: DE-SA-2022SA016230

PATIENT
  Age: 50 Year
  Sex: Male

DRUGS (3)
  1. DUPILUMAB [Suspect]
     Active Substance: DUPILUMAB
     Indication: Chronic rhinosinusitis with nasal polyps
     Dosage: 600 MG (2 X 300 MG LOADING DOSE)
  2. DUPILUMAB [Suspect]
     Active Substance: DUPILUMAB
     Indication: Asthma
  3. PREDNISONE [Concomitant]
     Active Substance: PREDNISONE
     Indication: Asthma
     Dosage: UNK

REACTIONS (5)
  - Eosinophilic pneumonia [Recovering/Resolving]
  - Respiratory symptom [Recovering/Resolving]
  - Middle insomnia [Recovering/Resolving]
  - Cough [Recovering/Resolving]
  - Eosinophilia [Recovered/Resolved]
